FAERS Safety Report 23097070 (Version 1)
Quarter: 2023Q4

REPORT INFORMATION
  Report Type: Spontaneous
  Country: IT (occurrence: IT)
  Receive Date: 20231023
  Receipt Date: 20231023
  Transmission Date: 20240110
  Serious: Yes (Hospitalization, Other)
  Sender: FDA-Public Use
  Company Number: IT-2023-1879

PATIENT
  Age: 34 Year
  Sex: Male

DRUGS (2)
  1. CLINDAMYCIN PHOSPHATE [Suspect]
     Active Substance: CLINDAMYCIN PHOSPHATE
     Indication: Streptococcus test positive
     Dosage: 600 MG, 3X/DAY EVERY 8 HOURS
     Route: 042
  2. PENICILLIN G [Suspect]
     Active Substance: PENICILLIN G
     Indication: Streptococcus test positive
     Dosage: 4 MUI EVERY 4 H
     Route: 042

REACTIONS (11)
  - Proctitis [Recovered/Resolved]
  - Eye inflammation [Recovered/Resolved]
  - Proctalgia [Recovered/Resolved]
  - Rash [Recovered/Resolved]
  - Abdominal pain [Recovered/Resolved]
  - Conjunctival hyperaemia [Recovered/Resolved]
  - Pharyngotonsillitis [Recovered/Resolved]
  - Drug ineffective [Recovered/Resolved]
  - Condition aggravated [Recovered/Resolved]
  - Rectal haemorrhage [Recovered/Resolved]
  - Blister [Recovered/Resolved]

NARRATIVE: CASE EVENT DATE: 20220101
